FAERS Safety Report 21533963 (Version 4)
Quarter: 2024Q4

REPORT INFORMATION
  Report Type: Report from Study
  Country: US (occurrence: US)
  Receive Date: 20221101
  Receipt Date: 20241125
  Transmission Date: 20250114
  Serious: Yes (Other)
  Sender: ABBVIE
  Company Number: US-ABBVIE-4182446

PATIENT
  Age: 58 Year
  Sex: Female
  Weight: 73.02 kg

DRUGS (23)
  1. SKYRIZI [Suspect]
     Active Substance: RISANKIZUMAB-RZAA
     Indication: Psoriatic arthropathy
     Route: 058
     Dates: start: 20221103, end: 202408
  2. SKYRIZI [Suspect]
     Active Substance: RISANKIZUMAB-RZAA
     Indication: Psoriasis
     Dosage: START DATE 2024
     Route: 058
  3. SKYRIZI [Suspect]
     Active Substance: RISANKIZUMAB-RZAA
     Dosage: LAST ADMIN DATE - 2022
     Route: 058
     Dates: start: 20220809
  4. SPRIX [Concomitant]
     Active Substance: KETOROLAC TROMETHAMINE
     Indication: Migraine
     Dosage: 15.75 MG?FREQUENCY TEXT: 1 SPRAY INTO EACH NOSTRIL AS NEEDED
  5. PHENERGAN [Concomitant]
     Active Substance: PROMETHAZINE HYDROCHLORIDE
     Indication: Nausea
     Dosage: 25 MG?FREQUENCY TEXT: 1 TAB EVERY 8 HR AS NEEDED
     Route: 048
  6. semaglutide (OZEMPIC ) [Concomitant]
     Indication: Product used for unknown indication
     Dosage: 1 MG?FREQUENCY TEXT: 1 MG UNDER THE SKIN ONCE A WEEK FRIDAYS
     Route: 058
  7. rosuvastatin calcium (CRESTOR ) [Concomitant]
     Indication: Product used for unknown indication
     Dosage: FREQUENCY TEXT:  TAKE BY MOUTH NIGHTLY
     Route: 048
  8. VITAMIN D3 [Concomitant]
     Active Substance: CHOLECALCIFEROL
     Indication: Product used for unknown indication
     Dosage: 1,000 UNIT?FREQUENCY TEXT: 1,000 UNITS BY MOUTH NIGHTLY.
  9. VENTOLIN HFA [Concomitant]
     Active Substance: ALBUTEROL SULFATE
     Indication: Wheezing
     Dosage: 90 MCG/ACTUATION INHALER?FREQUENCY TEXT: INHALE 2 PUFFS
  10. NEURONTIN [Concomitant]
     Active Substance: GABAPENTIN
     Indication: Product used for unknown indication
     Dosage: 400 MG
  11. BETAMETHASONE DIPROPIONATE [Concomitant]
     Active Substance: BETAMETHASONE DIPROPIONATE
     Indication: Product used for unknown indication
     Dosage: 0.05 %?FREQUENCY TEXT: APP EXT AA BID PRN
  12. FLAXSEED [Concomitant]
     Active Substance: FLAX SEED
     Indication: Product used for unknown indication
  13. CARAFATE [Concomitant]
     Active Substance: SUCRALFATE
     Indication: Product used for unknown indication
     Dosage: 1 GRAM?FREQUENCY TEXT: TAKE BY MOUTH AS NEEDED
     Route: 048
  14. COLESTID [Concomitant]
     Active Substance: COLESTIPOL HYDROCHLORIDE
     Indication: Product used for unknown indication
     Dosage: 1 GRAM?FREQUENCY TEXT: TAKE 1 G BY MOUTH ONCE A WEEK THURSDAY
  15. AMBIEN [Concomitant]
     Active Substance: ZOLPIDEM TARTRATE
     Indication: Product used for unknown indication
     Dosage: 10 MG?FREQUENCY TEXT: ORAL/GASTRIC TUBE ROUTE NIGHTLY
     Route: 048
  16. PRILOSEC [Concomitant]
     Active Substance: OMEPRAZOLE MAGNESIUM
     Indication: Product used for unknown indication
     Dosage: 40 MG?FREQUENCY TEXT: 40 MG BY MOUTH NIGHTLY
  17. CALCIUM CARBONATE [Concomitant]
     Active Substance: CALCIUM CARBONATE
     Indication: Product used for unknown indication
     Dosage: 600 MG?FREQUENCY TEXT: TAKE 600 MG BY MOUTH NIGHTLY
     Route: 048
  18. LEVSIN/SL [Concomitant]
     Indication: Muscle spasms
     Dosage: 0.125 MG SL?FREQUENCY TEXT: PLACE UNDER THE TONGUE
  19. DRISDOL [Concomitant]
     Active Substance: ERGOCALCIFEROL
     Indication: Product used for unknown indication
     Dosage: 1,250 MCG (50,000 UNIT)
  20. DRISDOL [Concomitant]
     Active Substance: ERGOCALCIFEROL
     Indication: Product used for unknown indication
     Dosage: 1,250 MCG (50,000 UNIT)?FREQUENCY TEXT: TWICE A WEEK
  21. ESTRACE [Concomitant]
     Active Substance: ESTRADIOL
     Indication: Product used for unknown indication
     Dosage: 0.01 PERCENT  (0.1 MG/GRAM)
     Route: 061
  22. PLAQUENIL [Concomitant]
     Active Substance: HYDROXYCHLOROQUINE SULFATE
     Indication: Product used for unknown indication
     Dosage: 200 MG?FREQUENCY TEXT: 1 TABLET  BY MOUTH 2 (TWO) TIMES A DAY
     Route: 048
  23. INDERAL LA [Concomitant]
     Active Substance: PROPRANOLOL HYDROCHLORIDE
     Indication: Product used for unknown indication
     Dosage: 160 MG
     Route: 048

REACTIONS (8)
  - Breast cancer female [Recovered/Resolved]
  - Nausea [Recovered/Resolved]
  - Renal cancer [Unknown]
  - Muscular weakness [Not Recovered/Not Resolved]
  - Headache [Recovered/Resolved]
  - Hypoaesthesia [Not Recovered/Not Resolved]
  - Vomiting [Recovered/Resolved]
  - Arthralgia [Not Recovered/Not Resolved]

NARRATIVE: CASE EVENT DATE: 20220927
